FAERS Safety Report 14294062 (Version 1)
Quarter: 2017Q4

REPORT INFORMATION
  Report Type: Spontaneous
  Country: CZ (occurrence: CZ)
  Receive Date: 20171217
  Receipt Date: 20171217
  Transmission Date: 20180321
  Serious: Yes (Hospitalization)
  Sender: FDA-Public Use
  Company Number: CZ-CIPLA LTD.-2017CZ24022

PATIENT

DRUGS (21)
  1. FLUCONAZOLE. [Suspect]
     Active Substance: FLUCONAZOLE
     Indication: PNEUMONIA
     Dosage: UNK
     Route: 065
  2. CYNT (MOXONIDIN) [Concomitant]
     Active Substance: MOXONIDINE
     Dosage: UNK
     Route: 065
  3. GODASAL [Concomitant]
     Active Substance: ASPIRIN\GLYCINE
     Dosage: UNK
     Route: 065
  4. LEVETIRACETAM. [Suspect]
     Active Substance: LEVETIRACETAM
     Dosage: 3000 MG, DAILY
     Route: 065
  5. LEVETIRACETAM. [Suspect]
     Active Substance: LEVETIRACETAM
     Dosage: 40 MG/KG
     Route: 042
  6. GLURENON [Concomitant]
     Dosage: UNK
     Route: 065
  7. FENYTOIN [Suspect]
     Active Substance: PHENYTOIN
     Indication: SEIZURE
     Dosage: 20 MG/KG
     Route: 042
  8. VASILIP [Concomitant]
     Active Substance: SIMVASTATIN
     Dosage: UNK
  9. MILURIT [Concomitant]
     Active Substance: ALLOPURINOL
     Dosage: UNK
     Route: 065
  10. DIAZEPAM. [Suspect]
     Active Substance: DIAZEPAM
     Indication: SEIZURE
     Dosage: UNK
     Route: 042
  11. AMOXICILLIN. [Suspect]
     Active Substance: AMOXICILLIN
     Indication: PNEUMONIA
     Dosage: UNK
     Route: 065
  12. TRITACE [Concomitant]
     Active Substance: RAMIPRIL
     Dosage: UNK
     Route: 065
  13. EUTHYROX [Concomitant]
     Active Substance: LEVOTHYROXINE SODIUM
     Dosage: UNK
     Route: 065
  14. KAPIDIN [Concomitant]
     Dosage: UNK
     Route: 065
  15. PARACETAMOL [Suspect]
     Active Substance: ACETAMINOPHEN
     Dosage: UNK
     Route: 065
  16. CEFTRIAXONE. [Suspect]
     Active Substance: CEFTRIAXONE
     Indication: PNEUMONIA
     Dosage: UNK
     Route: 065
  17. IBUPROFEN. [Suspect]
     Active Substance: IBUPROFEN
     Dosage: UNK
     Route: 065
  18. PROPOFOL. [Suspect]
     Active Substance: PROPOFOL
     Indication: SEIZURE
     Dosage: UNK
     Route: 065
  19. VALPROIC ACID. [Suspect]
     Active Substance: VALPROIC ACID
     Indication: SEIZURE
     Dosage: 30 MG/KG
     Route: 042
  20. METAMIZOLE [Suspect]
     Active Substance: METAMIZOLE
     Dosage: UNK
     Route: 065
  21. LOKREN [Concomitant]
     Active Substance: BETAXOLOL HYDROCHLORIDE
     Dosage: UNK
     Route: 065

REACTIONS (4)
  - Drug ineffective [Unknown]
  - Stevens-Johnson syndrome [Unknown]
  - Status epilepticus [Unknown]
  - Pneumonia [Unknown]
